FAERS Safety Report 21630983 (Version 1)
Quarter: 2022Q4

REPORT INFORMATION
  Report Type: Spontaneous
  Country: GB (occurrence: GB)
  Receive Date: 20221123
  Receipt Date: 20221123
  Transmission Date: 20230113
  Serious: Yes (Other)
  Sender: FDA-Public Use
  Company Number: GB-MHRA-MED-202211081030516610-KDNCW

PATIENT
  Age: 58 Year
  Sex: Female

DRUGS (2)
  1. PAROXETINE [Suspect]
     Active Substance: PAROXETINE
     Indication: Product used for unknown indication
     Dosage: 40 MILLIGRAM, EVERY MORNING(40MG IN THE MORNING)
     Route: 065
     Dates: start: 20221013
  2. ATENOLOL [Concomitant]
     Active Substance: ATENOLOL
     Indication: Panic attack
     Dosage: UNK
     Route: 065

REACTIONS (1)
  - Neck pain [Recovering/Resolving]
